FAERS Safety Report 14801035 (Version 1)
Quarter: 2018Q2

REPORT INFORMATION
  Report Type: Spontaneous
  Country: ES (occurrence: ES)
  Receive Date: 20180424
  Receipt Date: 20180424
  Transmission Date: 20180711
  Serious: Yes (Hospitalization)
  Sender: FDA-Public Use
  Company Number: PHHY2018ES068095

PATIENT
  Age: 56 Year

DRUGS (2)
  1. ENTRESTO [Suspect]
     Active Substance: SACUBITRIL\VALSARTAN
     Indication: PRODUCT USED FOR UNKNOWN INDICATION
     Dosage: UNK
     Route: 065
     Dates: start: 20180312
  2. STATIN [Concomitant]
     Active Substance: UNSPECIFIED INGREDIENT
     Indication: PRODUCT USED FOR UNKNOWN INDICATION
     Dosage: UNK
     Route: 065

REACTIONS (12)
  - Irritability [Unknown]
  - Thinking abnormal [Recovered/Resolved]
  - Insomnia [Recovered/Resolved]
  - Cardiac discomfort [Unknown]
  - Psychotic disorder [Recovering/Resolving]
  - Logorrhoea [Recovered/Resolved]
  - Disinhibition [Unknown]
  - Affect lability [Unknown]
  - Obsessive-compulsive personality disorder [Unknown]
  - Mania [Unknown]
  - Delirium [Unknown]
  - Memory impairment [Unknown]

NARRATIVE: CASE EVENT DATE: 20180312
